FAERS Safety Report 6574519-1 (Version None)
Quarter: 2010Q1

REPORT INFORMATION
  Report Type: 
  Country: None (occurrence: None)
  Receive Date: 20100209
  Receipt Date: 20091105
  Transmission Date: 20100710
  Serious: No
  Sender: FDA-Public Use
  Company Number: A0815404A

PATIENT
  Age: 38 Year
  Sex: Female

DRUGS (7)
  1. PAROXETINE HCL [Suspect]
     Dosage: 10MG PER DAY
     Route: 048
     Dates: start: 20090601, end: 20091009
  2. LORAZEPAM [Concomitant]
  3. MAGNESIUM [Concomitant]
  4. CLARITIN [Concomitant]
  5. VOLTAREN [Concomitant]
  6. Z-PAK [Concomitant]
  7. HYDROCODONE [Concomitant]

REACTIONS (5)
  - DRUG ADMINISTRATION ERROR [None]
  - HEADACHE [None]
  - MUSCULOSKELETAL DISCOMFORT [None]
  - OFF LABEL USE [None]
  - VERTIGO [None]
